FAERS Safety Report 16803944 (Version 1)
Quarter: 2019Q3

REPORT INFORMATION
  Report Type: Spontaneous
  Country: ES (occurrence: ES)
  Receive Date: 20190913
  Receipt Date: 20190913
  Transmission Date: 20191005
  Serious: Yes (Life-Threatening)
  Sender: FDA-Public Use
  Company Number: ES-B.I. PHARMACEUTICALS,INC./RIDGEFIELD-2019-12-101826

PATIENT
  Age: 59 Year
  Sex: Male
  Weight: 77.5 kg

DRUGS (9)
  1. IRBESARTAN. [Concomitant]
     Active Substance: IRBESARTAN
     Indication: HYPERTENSION
     Dosage: COMPRIMIDO
     Route: 065
     Dates: start: 20110128
  2. TRESIBA [Concomitant]
     Active Substance: INSULIN DEGLUDEC
     Indication: DIABETES MELLITUS
     Route: 058
     Dates: start: 20170908
  3. INEGY [Concomitant]
     Active Substance: EZETIMIBE\SIMVASTATIN
     Indication: DYSLIPIDAEMIA
     Dosage: 10 MG/40 MG, COMPRIMIDOS
     Route: 048
     Dates: start: 20110128
  4. APIDRA [Concomitant]
     Active Substance: INSULIN GLULISINE
     Indication: DIABETES MELLITUS
     Route: 058
     Dates: start: 20170419
  5. SYNJARDY [Suspect]
     Active Substance: EMPAGLIFLOZIN\METFORMIN HYDROCHLORIDE
     Indication: DIABETES MELLITUS
     Dosage: STRENGTH 12.5MG/1000MG
     Route: 048
     Dates: start: 20180410, end: 20190502
  6. BYDUREON [Concomitant]
     Active Substance: EXENATIDE
     Indication: DIABETES MELLITUS
     Route: 058
     Dates: start: 20131018
  7. COMPETACT [Concomitant]
     Active Substance: METFORMIN HYDROCHLORIDE\PIOGLITAZONE HYDROCHLORIDE
     Indication: DIABETES MELLITUS
     Dosage: 15 MG/850 MG,
     Route: 048
     Dates: start: 20120503
  8. NOVOMIX [Concomitant]
     Active Substance: INSULIN ASPART
     Indication: DIABETES MELLITUS
     Dosage: 70 FLEXPEN 100 U/ML SUSP. INYECTABLE EN UNA PLUMA PRECARGAD.
     Route: 065
  9. MANIDIPINO [Concomitant]
     Active Substance: MANIDIPINE
     Indication: HYPERTENSION
     Route: 065
     Dates: start: 20110128

REACTIONS (2)
  - Alcohol interaction [Recovered/Resolved]
  - Diabetic ketoacidosis [Recovered/Resolved]

NARRATIVE: CASE EVENT DATE: 20190428
